FAERS Safety Report 9742642 (Version 1)
Quarter: 2013Q4

REPORT INFORMATION
  Report Type: Spontaneous
  Country: US (occurrence: US)
  Receive Date: 20131210
  Receipt Date: 20131210
  Transmission Date: 20140711
  Serious: No
  Sender: FDA-Public Use
  Company Number: US-GILEAD-2009-0025239

PATIENT
  Sex: Female

DRUGS (15)
  1. LETAIRIS [Suspect]
     Indication: PULMONARY HYPERTENSION
     Route: 048
     Dates: start: 20090916
  2. REVATIO [Concomitant]
  3. WARFARIN [Concomitant]
  4. LISINOPRIL [Concomitant]
  5. ATENOLOL [Concomitant]
  6. FUROSEMIDE [Concomitant]
  7. AMLODIPINE [Concomitant]
  8. SPIRONOLACTONE [Concomitant]
  9. TRAMADOL [Concomitant]
  10. FOSAMAX [Concomitant]
  11. URSODIOL [Concomitant]
  12. PREDNISONE [Concomitant]
  13. MAGNESIUM [Concomitant]
  14. POTASSIUM [Concomitant]
  15. VITAMIN E [Concomitant]

REACTIONS (2)
  - Tremor [Unknown]
  - Arthralgia [Unknown]
